FAERS Safety Report 20911123 (Version 10)
Quarter: 2024Q1

REPORT INFORMATION
  Report Type: Other
  Country: CA (occurrence: None)
  Receive Date: 20220603
  Receipt Date: 20240304
  Transmission Date: 20240410
  Serious: No
  Sender: FDA-Public Use
  Company Number: CA-ROCHE-2569834

PATIENT
  Age: 47 Year
  Sex: Female
  Weight: 55 kg

DRUGS (2)
  1. OCREVUS [Suspect]
     Active Substance: OCRELIZUMAB
     Indication: Relapsing-remitting multiple sclerosis
     Dosage: 300 MG AT DAY 0 AND 14, THEN 600 MG EVERY 6 MONTH
     Route: 042
     Dates: start: 20190904
  2. GABAPENTIN [Concomitant]
     Active Substance: GABAPENTIN
     Dosage: 300 MG QHS

REACTIONS (3)
  - Thyroid disorder [Unknown]
  - COVID-19 [Unknown]
  - Mobility decreased [Unknown]

NARRATIVE: CASE EVENT DATE: 20220401
